FAERS Safety Report 23957787 (Version 1)
Quarter: 2024Q2

REPORT INFORMATION
  Report Type: Spontaneous
  Country: US (occurrence: None)
  Receive Date: 20240608
  Receipt Date: 20240608
  Transmission Date: 20240716
  Serious: Yes (Death, Life-Threatening, Hospitalization)
  Sender: FDA-Public Use
  Company Number: None

PATIENT
  Age: 84 Year
  Sex: Male
  Weight: 76.5 kg

DRUGS (1)
  1. OPDIVO [Suspect]
     Active Substance: NIVOLUMAB
     Indication: Prophylaxis
     Dates: start: 20240403, end: 20240527

REACTIONS (4)
  - Product communication issue [None]
  - Cardiac failure congestive [None]
  - Pulmonary oedema [None]
  - Interstitial lung disease [None]

NARRATIVE: CASE EVENT DATE: 20240403
